FAERS Safety Report 24983011 (Version 2)
Quarter: 2025Q3

REPORT INFORMATION
  Report Type: Report from Study
  Country: CA (occurrence: CA)
  Receive Date: 20250218
  Receipt Date: 20250810
  Transmission Date: 20251020
  Serious: Yes (Hospitalization, Other)
  Sender: ALEXION PHARMACEUTICALS
  Company Number: CA-AstraZeneca-CH-00783140A

PATIENT
  Sex: Female

DRUGS (1)
  1. OSIMERTINIB [Suspect]
     Active Substance: OSIMERTINIB
     Indication: Small cell lung cancer
     Dosage: 80 MILLIGRAM, QD
     Dates: start: 20240122

REACTIONS (4)
  - Pneumonia [Recovered/Resolved]
  - Arthralgia [Recovering/Resolving]
  - Fall [Unknown]
  - Shoulder fracture [Unknown]
